FAERS Safety Report 7911454-8 (Version None)
Quarter: 2011Q4

REPORT INFORMATION
  Report Type: 
  Country: None (occurrence: None)
  Receive Date: 20111108
  Receipt Date: 20101105
  Transmission Date: 20120403
  Serious: Yes (Other)
  Sender: FDA-Public Use
  Company Number: US-1183969

PATIENT
  Age: 71 Year
  Sex: Female
  Weight: 47.6277 kg

DRUGS (3)
  1. CLINDAMYCIN [Concomitant]
  2. TOBRADEX [Suspect]
     Indication: EYE INFECTION
     Dosage: (1/2 OINTMENT 2-3 TIMES DAILY OPHTHALMIC)
     Route: 047
     Dates: start: 20101102, end: 20101103
  3. LISINOPRIL [Concomitant]

REACTIONS (1)
  - DYSGEUSIA [None]
